FAERS Safety Report 12441566 (Version 1)
Quarter: 2016Q2

REPORT INFORMATION
  Report Type: Spontaneous
  Country: US (occurrence: None)
  Receive Date: 20160606
  Receipt Date: 20160606
  Transmission Date: 20160815
  Serious: No
  Sender: FDA-Public Use
  Company Number: None

PATIENT
  Age: 34 Year
  Sex: Female
  Weight: 58.97 kg

DRUGS (1)
  1. REMEVEN [Suspect]
     Active Substance: UREA
     Route: 061

REACTIONS (2)
  - Scratch [None]
  - Product contamination physical [None]

NARRATIVE: CASE EVENT DATE: 20160525
